FAERS Safety Report 12669679 (Version 1)
Quarter: 2016Q3

REPORT INFORMATION
  Report Type: Spontaneous
  Country: GB (occurrence: GB)
  Receive Date: 20160819
  Receipt Date: 20160819
  Transmission Date: 20161109
  Serious: Yes (Hospitalization)
  Sender: FDA-Public Use
  Company Number: GB-ASTRAZENECA-2016SE86888

PATIENT
  Age: 57 Year
  Sex: Female
  Weight: 97 kg

DRUGS (8)
  1. DAPAGLIFLOZIN [Suspect]
     Active Substance: DAPAGLIFLOZIN
     Indication: DIABETES MELLITUS
     Dosage: 10.0MG UNKNOWN
     Route: 048
     Dates: start: 20151202
  2. ATORVASTATIN [Concomitant]
     Active Substance: ATORVASTATIN
  3. LISINOPRIL. [Concomitant]
     Active Substance: LISINOPRIL
  4. HUMAN INSULATARD [Concomitant]
     Active Substance: INSULIN HUMAN
  5. ALLOPURINOL. [Concomitant]
     Active Substance: ALLOPURINOL
  6. METFORMIN [Concomitant]
     Active Substance: METFORMIN HYDROCHLORIDE
  7. GLICLAZIDE [Concomitant]
     Active Substance: GLICLAZIDE
  8. OMEPRAZOLE. [Concomitant]
     Active Substance: OMEPRAZOLE

REACTIONS (2)
  - Pancreatitis acute [Not Recovered/Not Resolved]
  - Peripancreatic fluid collection [Unknown]

NARRATIVE: CASE EVENT DATE: 20160613
